FAERS Safety Report 9814315 (Version 1)
Quarter: 2014Q1

REPORT INFORMATION
  Report Type: Report from Study
  Country: ES (occurrence: ES)
  Receive Date: 20140113
  Receipt Date: 20140113
  Transmission Date: 20141002
  Serious: Yes (Other)
  Sender: FDA-Public Use
  Company Number: ES-VERTEX PHARMACEUTICALS INC-2014-000137

PATIENT
  Sex: 0

DRUGS (3)
  1. TELAPREVIR [Suspect]
     Indication: CHRONIC HEPATITIS C
  2. PEG INTERFERON [Suspect]
     Indication: CHRONIC HEPATITIS C
  3. RIBAVIRIN [Suspect]
     Indication: CHRONIC HEPATITIS C

REACTIONS (2)
  - Pancytopenia [Unknown]
  - Rash [Unknown]
